FAERS Safety Report 8550758-5 (Version None)
Quarter: 2012Q3

REPORT INFORMATION
  Report Type: 
  Country: None (occurrence: None)
  Receive Date: 20120730
  Receipt Date: 20120719
  Transmission Date: 20120928
  Serious: Yes (Hospitalization, Disabling, Other)
  Sender: FDA-Public Use
  Company Number: US-009507513-1203USA03322

PATIENT

DRUGS (3)
  1. FOSAMAX [Suspect]
     Indication: OSTEOPOROSIS
  2. FOSAMAX [Suspect]
     Indication: OSTEOPENIA
     Dosage: 70 MG, QW
     Route: 048
     Dates: start: 20040430, end: 20110101
  3. FOSAMAX [Suspect]
     Dosage: 70 MG, QW
     Route: 048
     Dates: start: 20081028, end: 20110823

REACTIONS (71)
  - OSTEOPOROSIS [None]
  - RENAL FAILURE ACUTE [None]
  - TEMPOROMANDIBULAR JOINT SYNDROME [None]
  - PERIODONTAL DISEASE [None]
  - CARTILAGE INJURY [None]
  - TEMPORAL ARTERITIS [None]
  - PAIN [None]
  - ASTHMA [None]
  - HEPATIC STEATOSIS [None]
  - HYPERPARATHYROIDISM [None]
  - SPONDYLOLISTHESIS [None]
  - GALLBLADDER DISORDER [None]
  - SCOLIOSIS [None]
  - COLONIC POLYP [None]
  - RESTLESS LEGS SYNDROME [None]
  - STRESS FRACTURE [None]
  - INFECTION [None]
  - URINARY TRACT INFECTION [None]
  - SPINAL DISORDER [None]
  - HYPERKALAEMIA [None]
  - HYPOVOLAEMIA [None]
  - HYPERLIPIDAEMIA [None]
  - METABOLIC ACIDOSIS [None]
  - CARDIAC DISORDER [None]
  - GASTROOESOPHAGEAL REFLUX DISEASE [None]
  - MYOCARDIAL INFARCTION [None]
  - ELECTROCARDIOGRAM ST SEGMENT ABNORMAL [None]
  - OSTEOMYELITIS BACTERIAL [None]
  - ABSCESS [None]
  - TENDONITIS [None]
  - ANAEMIA [None]
  - METABOLIC SYNDROME [None]
  - CORONARY ARTERY DISEASE [None]
  - OSTEOMYELITIS [None]
  - DEAFNESS [None]
  - PRURITUS [None]
  - ARTHROPATHY [None]
  - LUMBAR RADICULOPATHY [None]
  - RASH [None]
  - COMPRESSION FRACTURE [None]
  - PANCREATIC DISORDER [None]
  - SPINAL COMPRESSION FRACTURE [None]
  - FEMUR FRACTURE [None]
  - SEPSIS [None]
  - RENAL FAILURE [None]
  - VITAMIN D DEFICIENCY [None]
  - BLOOD UREA INCREASED [None]
  - ROTATOR CUFF SYNDROME [None]
  - ATROPHIC VULVOVAGINITIS [None]
  - INTESTINAL POLYP [None]
  - SINUSITIS [None]
  - RHINITIS [None]
  - ORAL TORUS [None]
  - LOW TURNOVER OSTEOPATHY [None]
  - SPONDYLOARTHROPATHY [None]
  - FIBROCYSTIC BREAST DISEASE [None]
  - MULTIPLE ALLERGIES [None]
  - RENAL CYST [None]
  - CHRONIC OBSTRUCTIVE PULMONARY DISEASE [None]
  - ENZYME LEVEL INCREASED [None]
  - MUSCLE SPASMS [None]
  - HAEMORRHAGE [None]
  - RHEUMATOID ARTHRITIS [None]
  - TUBULOINTERSTITIAL NEPHRITIS [None]
  - RENAL FAILURE CHRONIC [None]
  - TOOTH DISORDER [None]
  - OSTEOARTHRITIS [None]
  - POLYMYALGIA RHEUMATICA [None]
  - HAEMATURIA [None]
  - INFLUENZA [None]
  - DYSPEPSIA [None]
